FAERS Safety Report 12352612 (Version 1)
Quarter: 2016Q2

REPORT INFORMATION
  Report Type: Spontaneous
  Country: US (occurrence: US)
  Receive Date: 20160510
  Receipt Date: 20160510
  Transmission Date: 20160815
  Serious: No
  Sender: FDA-Public Use
  Company Number: US-ELI_LILLY_AND_COMPANY-US201605001536

PATIENT
  Sex: Male

DRUGS (2)
  1. HUMALOG [Suspect]
     Active Substance: INSULIN LISPRO
     Indication: TYPE 1 DIABETES MELLITUS
     Dosage: UNK, OTHER
     Route: 065
     Dates: start: 2015
  2. T4 [Concomitant]
     Active Substance: LEVOTHYROXINE

REACTIONS (3)
  - Incorrect product storage [Unknown]
  - Drug ineffective [Not Recovered/Not Resolved]
  - Blood glucose abnormal [Unknown]
